FAERS Safety Report 4949832-1 (Version None)
Quarter: 2006Q1

REPORT INFORMATION
  Report Type: 
  Country: None (occurrence: None)
  Receive Date: 20060315
  Receipt Date: 20060227
  Transmission Date: 20060701
  Serious: Yes (Hospitalization)
  Sender: FDA-Public Use
  Company Number: US200602005537

PATIENT
  Sex: Female

DRUGS (1)
  1. HUMALOG MIX 75/25 [Suspect]
     Dates: start: 20051201

REACTIONS (4)
  - BRONCHITIS [None]
  - CARDIAC FAILURE [None]
  - OEDEMA [None]
  - TRIPLE VESSEL BYPASS GRAFT [None]
